FAERS Safety Report 7893845-7 (Version None)
Quarter: 2011Q4

REPORT INFORMATION
  Report Type: 
  Country: None (occurrence: None)
  Receive Date: 20111104
  Receipt Date: 20111025
  Transmission Date: 20120403
  Serious: Yes (Other)
  Sender: FDA-Public Use
  Company Number: PHEH2011US08090

PATIENT
  Age: 31 Year
  Sex: Female
  Weight: 162 kg

DRUGS (3)
  1. SANDOSTATIN LAR [Suspect]
     Indication: ACROMEGALY
     Dosage: 40 MG, EVERY 4 WEEKS
     Route: 030
     Dates: start: 20110725
  2. CABERGOLINE [Concomitant]
     Dosage: UNK UKN, UNK
     Route: 048
  3. CABERGOLINE [Concomitant]
     Dosage: 1 MG, UNK
     Route: 048

REACTIONS (2)
  - MENORRHAGIA [None]
  - UTERINE LEIOMYOMA [None]
